FAERS Safety Report 14793805 (Version 3)
Quarter: 2018Q2

REPORT INFORMATION
  Report Type: Spontaneous
  Country: US (occurrence: US)
  Receive Date: 20180423
  Receipt Date: 20180608
  Transmission Date: 20180711
  Serious: Yes (Other)
  Sender: FDA-Public Use
  Company Number: US-GLAXOSMITHKLINE-US2018GSK069480

PATIENT
  Sex: Female

DRUGS (1)
  1. ADVAIR DISKUS [Suspect]
     Active Substance: FLUTICASONE PROPIONATE\SALMETEROL XINAFOATE
     Indication: CHRONIC OBSTRUCTIVE PULMONARY DISEASE
     Dosage: UNK
     Dates: start: 20160601

REACTIONS (7)
  - Visual impairment [Unknown]
  - Blindness [Unknown]
  - Condition aggravated [Unknown]
  - Eye haemorrhage [Recovered/Resolved]
  - Macular degeneration [Unknown]
  - Cardiac pacemaker insertion [Unknown]
  - Glaucoma [Unknown]
